FAERS Safety Report 10161907 (Version 1)
Quarter: 2014Q2

REPORT INFORMATION
  Report Type: Spontaneous
  Country: US (occurrence: None)
  Receive Date: 20140507
  Receipt Date: 20140507
  Transmission Date: 20141212
  Serious: Yes (Hospitalization)
  Sender: FDA-Public Use
  Company Number: UTC-047872

PATIENT
  Age: 59 Year
  Sex: Female

DRUGS (1)
  1. REMODULIN  (5 MILLIGRAM/MILLILITERS, INJECTION FOR [Suspect]
     Indication: PULMONARY ARTERIAL HYPERTENSION
     Dosage: 44.64 UG/KG (0.031 UG/KG, 1 IN 1 MIN), SUBCUTANEOUS
     Route: 058
     Dates: start: 20140214

REACTIONS (2)
  - Influenza [None]
  - Pyrexia [None]
